FAERS Safety Report 8506506-8 (Version None)
Quarter: 2012Q2

REPORT INFORMATION
  Report Type: 
  Country: None (occurrence: None)
  Receive Date: 20120405
  Receipt Date: 20090429
  Transmission Date: 20120825
  Serious: Yes (Hospitalization)
  Sender: FDA-Public Use
  Company Number: PHEH2009US03170

PATIENT
  Age: 41 Year
  Sex: Male
  Weight: 159.2 kg

DRUGS (4)
  1. SYNTHROID [Concomitant]
  2. BENICAR [Concomitant]
  3. RECLAST [Suspect]
     Indication: OSTEOPOROSIS
     Dosage: 5 MG, ANNUALLY, INTRAVENOUS
     Route: 042
     Dates: start: 20090312
  4. ANALGESICS (NO INGREDIENTS/SUBSTANCES) [Concomitant]

REACTIONS (3)
  - ANAEMIA [None]
  - INFLUENZA LIKE ILLNESS [None]
  - HYPOCALCAEMIA [None]
